FAERS Safety Report 13123102 (Version 1)
Quarter: 2017Q1

REPORT INFORMATION
  Report Type: Spontaneous
  Country: US (occurrence: US)
  Receive Date: 20170117
  Receipt Date: 20170117
  Transmission Date: 20170428
  Serious: Yes (Hospitalization, Congenital Anomaly)
  Sender: FDA-Public Use
  Company Number: PHHY2017US003887

PATIENT
  Sex: Male
  Weight: 4.28 kg

DRUGS (1)
  1. METHOTREXATE. [Suspect]
     Active Substance: METHOTREXATE
     Indication: FOETAL EXPOSURE DURING PREGNANCY
     Dosage: 75 UG, UNK
     Route: 064

REACTIONS (7)
  - Hydrocephalus [Unknown]
  - Arnold-Chiari malformation [Unknown]
  - Meningomyelocele [Unknown]
  - Foetal methotrexate syndrome [Unknown]
  - Head deformity [Unknown]
  - Spina bifida [Unknown]
  - Foetal exposure during pregnancy [Unknown]
